FAERS Safety Report 8308478-8 (Version None)
Quarter: 2012Q2

REPORT INFORMATION
  Report Type: 
  Country: None (occurrence: None)
  Receive Date: 20120424
  Receipt Date: 20120412
  Transmission Date: 20120825
  Serious: Yes (Other)
  Sender: FDA-Public Use
  Company Number: AR-ROCHE-1061537

PATIENT
  Age: 49 Year
  Sex: Female

DRUGS (5)
  1. ENALAPRIL MALEATE [Concomitant]
  2. OMEPRAZOLE [Concomitant]
  3. ALBUTEROL [Concomitant]
  4. BUDESONIDE [Concomitant]
  5. XOLAIR [Suspect]
     Indication: ASTHMA
     Dosage: ONE AMPOULE EVERY 15 DAYS.
     Dates: start: 20050101

REACTIONS (1)
  - FIBROMA [None]
